FAERS Safety Report 7358976-9 (Version None)
Quarter: 2011Q1

REPORT INFORMATION
  Report Type: 
  Country: None (occurrence: None)
  Receive Date: 20110317
  Receipt Date: 20100909
  Transmission Date: 20110831
  Serious: Yes (Hospitalization, Other)
  Sender: FDA-Public Use
  Company Number: US-BAYER-200942370NA

PATIENT
  Sex: Female
  Weight: 63.492 kg

DRUGS (5)
  1. YASMIN [Suspect]
     Dosage: 1 DF (DAILY DOSE), QD, ORAL
     Route: 048
     Dates: start: 20060201, end: 20080701
  2. OCELLA [Suspect]
     Dosage: UNK
     Dates: start: 20080701, end: 20100301
  3. YASMIN [Suspect]
     Dosage: 1 DF (DAILY DOSE), QD, ORAL
     Route: 048
     Dates: start: 20040801, end: 20050501
  4. YAZ [Suspect]
     Dosage: 1 DF (DAILY DOSE), QD, ORAL
     Route: 048
     Dates: start: 20080227, end: 20080719
  5. NSAID'S [Concomitant]

REACTIONS (8)
  - GALLBLADDER DISORDER [None]
  - ABDOMINAL PAIN UPPER [None]
  - NAUSEA [None]
  - CHOLECYSTITIS CHRONIC [None]
  - VOMITING [None]
  - GASTROOESOPHAGEAL REFLUX DISEASE [None]
  - GALLBLADDER CHOLESTEROLOSIS [None]
  - PAIN [None]
